FAERS Safety Report 6153497-3 (Version None)
Quarter: 2009Q2

REPORT INFORMATION
  Report Type: 
  Country: None (occurrence: None)
  Receive Date: 20090409
  Receipt Date: 20090409
  Transmission Date: 20091009
  Serious: No
  Sender: FDA-Public Use
  Company Number: None

PATIENT
  Age: 77 Year
  Sex: Female
  Weight: 58.9676 kg

DRUGS (4)
  1. ACTONEL [Suspect]
     Indication: OSTEOPENIA
     Dosage: 150 MG. ONCE X MONTH ORAL
     Route: 048
     Dates: start: 20081111
  2. ACTONEL [Suspect]
     Indication: OSTEOPENIA
     Dosage: 150 MG. ONCE X MONTH ORAL
     Route: 048
     Dates: start: 20081209
  3. ACTONEL [Suspect]
     Indication: OSTEOPENIA
     Dosage: 150 MG. ONCE X MONTH ORAL
     Route: 048
     Dates: start: 20090113
  4. PRAVASTATIN [Suspect]
     Indication: BLOOD CHOLESTEROL INCREASED
     Dosage: 20 MG ONCE DAILY H.S. ORAL
     Route: 048
     Dates: start: 20090203

REACTIONS (8)
  - DISCOMFORT [None]
  - HYPOAESTHESIA [None]
  - INSOMNIA [None]
  - JOINT RANGE OF MOTION DECREASED [None]
  - LOW DENSITY LIPOPROTEIN INCREASED [None]
  - MUSCULOSKELETAL DISCOMFORT [None]
  - MUSCULOSKELETAL STIFFNESS [None]
  - PARAESTHESIA [None]
